FAERS Safety Report 11388092 (Version 37)
Quarter: 2019Q3

REPORT INFORMATION
  Report Type: Spontaneous
  Country: BR (occurrence: BR)
  Receive Date: 20150817
  Receipt Date: 20190919
  Transmission Date: 20191004
  Serious: Yes (Hospitalization, Other)
  Sender: FDA-Public Use
  Company Number: BR-GLAXOSMITHKLINE INC.-BR2015GSK116158

PATIENT
  Sex: Female
  Weight: 62 kg

DRUGS (8)
  1. BENLYSTA [Suspect]
     Active Substance: BELIMUMAB
     Indication: SYSTEMIC LUPUS ERYTHEMATOSUS
     Dosage: UNK
     Route: 042
     Dates: start: 20141210
  2. CLAVULIN [Suspect]
     Active Substance: AMOXICILLIN\CLAVULANATE POTASSIUM
     Indication: PRODUCT USED FOR UNKNOWN INDICATION
     Dosage: 750 MG, UNK,12/12 HOURS
     Dates: end: 20180810
  3. CYMBALTA [Concomitant]
     Active Substance: DULOXETINE HYDROCHLORIDE
     Indication: DEPRESSION
     Dosage: UNK
  4. BENLYSTA [Suspect]
     Active Substance: BELIMUMAB
     Dosage: 690 MG, UNK
     Route: 042
  5. PREDNISOLONE. [Concomitant]
     Active Substance: PREDNISOLONE
     Indication: PRODUCT USED FOR UNKNOWN INDICATION
     Dosage: UNK
  6. BENLYSTA [Suspect]
     Active Substance: BELIMUMAB
     Dosage: 400 MG, UNK
     Route: 042
  7. BENLYSTA [Suspect]
     Active Substance: BELIMUMAB
     Dosage: 800 MG, UNK
     Route: 042
  8. TECNOMET [Concomitant]
     Active Substance: METHOTREXATE
     Indication: PRODUCT USED FOR UNKNOWN INDICATION
     Dosage: 2.5 MG, UNK

REACTIONS (29)
  - Pain in extremity [Unknown]
  - Musculoskeletal pain [Unknown]
  - Weight increased [Unknown]
  - Gait disturbance [Unknown]
  - Pelvic fracture [Unknown]
  - Infection [Not Recovered/Not Resolved]
  - Overdose [Unknown]
  - Spinal fracture [Unknown]
  - Pyrexia [Unknown]
  - Inappropriate schedule of product administration [Recovered/Resolved]
  - Product prescribing issue [Unknown]
  - Bedridden [Unknown]
  - Stomatitis [Unknown]
  - Influenza [Recovered/Resolved]
  - Fall [Recovered/Resolved with Sequelae]
  - Pain [Unknown]
  - Oral candidiasis [Unknown]
  - Asthenia [Unknown]
  - Product dose omission [Not Recovered/Not Resolved]
  - Product use in unapproved indication [Unknown]
  - Sciatica [Unknown]
  - Circumstance or information capable of leading to medication error [Unknown]
  - Pneumonia [Recovered/Resolved]
  - Urinary tract infection [Recovered/Resolved]
  - Product availability issue [Unknown]
  - Pruritus generalised [Unknown]
  - Tendon rupture [Unknown]
  - Weight decreased [Unknown]
  - Underdose [Unknown]
